FAERS Safety Report 9842614 (Version 1)
Quarter: 2014Q1

REPORT INFORMATION
  Report Type: Spontaneous
  Country: US (occurrence: US)
  Receive Date: 20140124
  Receipt Date: 20140124
  Transmission Date: 20141002
  Serious: Yes (Life-Threatening, Hospitalization, Other)
  Sender: FDA-Public Use
  Company Number: US-BAYER-2014-013100

PATIENT
  Age: 49 Year
  Sex: Female
  Weight: 91 kg

DRUGS (16)
  1. YAZ [Suspect]
  2. YASMIN [Suspect]
  3. VALIUM [Concomitant]
     Dosage: 0.5 MG, UNK
     Route: 048
  4. NORITATE [Concomitant]
     Dosage: 1%
     Route: 061
     Dates: start: 20070317
  5. ARTHROTEC [DICLOFENAC SODIUM] [Concomitant]
     Dosage: UNK
     Route: 048
     Dates: start: 20070403
  6. PROPOXYPHENE NAPSYLATE W/ACETAMINOPHENE [Concomitant]
     Dosage: 100-650 MG
     Route: 048
     Dates: start: 20070407
  7. MACROBID [Concomitant]
     Dosage: TWICE A DAY WITH TREE MORE TABLETS TO TAKE
     Route: 048
  8. SEROQUEL [Concomitant]
     Route: 048
  9. ZANTAC [Concomitant]
     Dosage: 150 MG, BID
     Route: 048
  10. FROVA [Concomitant]
     Indication: MIGRAINE
     Dosage: AS NEEDED
     Route: 048
  11. PREVACID [Concomitant]
     Dosage: 30 MG, BID
     Route: 048
  12. PROTONIX [Concomitant]
     Route: 048
  13. CYMBALTA [Concomitant]
     Route: 048
  14. ATIVAN [Concomitant]
  15. NITROFURANTOIN [Concomitant]
     Indication: URINARY TRACT INFECTION
  16. LEVBID [Concomitant]

REACTIONS (4)
  - Pulmonary embolism [None]
  - Pulmonary embolism [Recovered/Resolved]
  - Deep vein thrombosis [Recovered/Resolved]
  - Cholelithiasis [None]
